FAERS Safety Report 4649101-3 (Version None)
Quarter: 2005Q2

REPORT INFORMATION
  Report Type: 
  Country: None (occurrence: None)
  Receive Date: 20050331
  Receipt Date: 20041227
  Transmission Date: 20051028
  Serious: No
  Sender: FDA-Public Use
  Company Number: 04P-163-0284543-00

PATIENT
  Age: 75 Year
  Sex: Female
  Weight: 72.1219 kg

DRUGS (9)
  1. HUMIRA [Suspect]
     Indication: RHEUMATOID ARTHRITIS
     Dosage: 40 MG, 1 IN 2 WK, SUBCUTANEOUS
     Route: 058
     Dates: start: 20040401
  2. METHOTREXATE [Concomitant]
  3. LEVOTHYROXINE SODIUM [Concomitant]
  4. RISEDRONATE SODIUM [Concomitant]
  5. PROVELLA-14 [Concomitant]
  6. MULTI-VITAMINS [Concomitant]
  7. GLUCOSAMINE [Concomitant]
  8. CALCIUM CITRATE [Concomitant]
  9. TOCOPHEROL CONCENTRATE CAP [Concomitant]

REACTIONS (1)
  - BLOOD PRESSURE INCREASED [None]
